FAERS Safety Report 4958862-5 (Version None)
Quarter: 2006Q1

REPORT INFORMATION
  Report Type: 
  Country: None (occurrence: None)
  Receive Date: 20060331
  Receipt Date: 20060323
  Transmission Date: 20060701
  Serious: Yes (Hospitalization)
  Sender: FDA-Public Use
  Company Number: FR-BOEHRINGER INGELHEIM PHARMACEUTICALS, INC.-2006-FF-00235FF

PATIENT
  Age: 77 Year
  Sex: Male

DRUGS (3)
  1. MOBIC [Suspect]
     Route: 048
  2. MOPRAL [Concomitant]
  3. ANTIPARKINSON MEDICATIONS [Concomitant]
     Indication: PARKINSON'S DISEASE

REACTIONS (3)
  - GASTRITIS HAEMORRHAGIC [None]
  - HAEMOGLOBIN DECREASED [None]
  - OESOPHAGITIS [None]
